FAERS Safety Report 11063521 (Version 1)
Quarter: 2015Q2

REPORT INFORMATION
  Report Type: Spontaneous
  Country: US (occurrence: US)
  Receive Date: 20150424
  Receipt Date: 20150424
  Transmission Date: 20150821
  Serious: No
  Sender: FDA-Public Use
  Company Number: US-GLAXOSMITHKLINE-US2015055614

PATIENT
  Age: 8 Year
  Sex: Male

DRUGS (3)
  1. FLOVENT DISKUS [Suspect]
     Active Substance: FLUTICASONE PROPIONATE
     Indication: ASTHMA
     Dosage: 2 PUFF(S), PRN
     Route: 055
  2. FISH OIL [Concomitant]
     Active Substance: FISH OIL
  3. ADVAIR HFA [Suspect]
     Active Substance: FLUTICASONE PROPIONATE\SALMETEROL XINAFOATE
     Indication: ASTHMA
     Dosage: UNK, U

REACTIONS (5)
  - Tremor [Unknown]
  - Drug administered to patient of inappropriate age [Recovered/Resolved]
  - Nightmare [Not Recovered/Not Resolved]
  - Somnambulism [Unknown]
  - Underdose [Not Recovered/Not Resolved]
